FAERS Safety Report 9844532 (Version 1)
Quarter: 2014Q1

REPORT INFORMATION
  Report Type: Spontaneous
  Country: TR (occurrence: None)
  Receive Date: 20140122
  Receipt Date: 20140122
  Transmission Date: 20141002
  Serious: Yes (Life-Threatening)
  Sender: FDA-Public Use
  Company Number: 2116452

PATIENT
  Age: 30 Year
  Sex: Male

DRUGS (2)
  1. OXALIPLATIN [Suspect]
     Indication: COLON CANCER
     Dosage: 140 MG MILLIGRAM(S), UNKNOWN, INTRAVENOUS
     Route: 042
     Dates: start: 20131207, end: 20131207
  2. (FOLINIC ACID) [Concomitant]

REACTIONS (3)
  - Tachycardia [None]
  - Feeling hot [None]
  - Respiratory distress [None]
